FAERS Safety Report 24811299 (Version 1)
Quarter: 2025Q1

REPORT INFORMATION
  Report Type: Spontaneous
  Country: IT (occurrence: IT)
  Receive Date: 20250106
  Receipt Date: 20250106
  Transmission Date: 20250409
  Serious: Yes (Other)
  Sender: AMGEN
  Company Number: IT-AMGEN-ITASP2024256753

PATIENT
  Age: 52 Year
  Sex: Male

DRUGS (9)
  1. BLINATUMOMAB [Suspect]
     Active Substance: BLINATUMOMAB
     Indication: B-cell type acute leukaemia
     Route: 065
  2. VINCRISTINE [Concomitant]
     Active Substance: VINCRISTINE
  3. CYCLOPHOSPHAMIDE [Concomitant]
     Active Substance: CYCLOPHOSPHAMIDE
  4. IDARUBICIN [Concomitant]
     Active Substance: IDARUBICIN
  5. ASPARAGINASE [Concomitant]
     Active Substance: ASPARAGINASE
  6. CYTARABINE [Concomitant]
     Active Substance: CYTARABINE
     Route: 029
  7. METHOTREXATE [Concomitant]
     Active Substance: METHOTREXATE
  8. MERCAPTOPURINE [Concomitant]
     Active Substance: MERCAPTOPURINE
  9. RITUXIMAB [Concomitant]
     Active Substance: RITUXIMAB

REACTIONS (2)
  - COVID-19 pneumonia [Unknown]
  - Leukaemic infiltration extramedullary [Unknown]
